FAERS Safety Report 9277741 (Version 2)
Quarter: 2013Q2

REPORT INFORMATION
  Report Type: Report from Study
  Country: CA (occurrence: CA)
  Receive Date: 20130508
  Receipt Date: 20130604
  Transmission Date: 20140414
  Serious: Yes (Hospitalization)
  Sender: FDA-Public Use
  Company Number: CA-JNJFOC-20130500210

PATIENT
  Age: 34 Year
  Sex: Female

DRUGS (6)
  1. REMICADE [Suspect]
     Indication: COLITIS ULCERATIVE
     Route: 042
     Dates: start: 20130408
  2. REMICADE [Suspect]
     Indication: COLITIS ULCERATIVE
     Route: 042
     Dates: start: 20121115
  3. PREDNISONE [Concomitant]
     Route: 065
  4. ZOMIG [Concomitant]
     Route: 065
  5. METHOTREXATE [Concomitant]
     Route: 065
  6. TYLENOL 3 [Concomitant]
     Route: 065

REACTIONS (1)
  - Pancreatitis acute [Not Recovered/Not Resolved]
